FAERS Safety Report 6292781-X (Version None)
Quarter: 2009Q3

REPORT INFORMATION
  Report Type: 
  Country: None (occurrence: None)
  Receive Date: 20090729
  Receipt Date: 20090720
  Transmission Date: 20100115
  Serious: Yes (Other)
  Sender: FDA-Public Use
  Company Number: ADR8092009

PATIENT
  Age: 55 Year
  Sex: Male

DRUGS (5)
  1. ALENDRONIC ACID (MFR: UNKNOWN) [Suspect]
     Dosage: 70 MG WEEKLY ORAL USE
     Route: 048
     Dates: start: 20081228, end: 20090110
  2. AZATHIOPRINE 200MG [Concomitant]
  3. NAPROXEN [Concomitant]
  4. ORLISTAT 120MG [Concomitant]
  5. PREDNISOLONE 4MG [Concomitant]

REACTIONS (2)
  - HAEMORRHAGIC DISORDER [None]
  - RECTAL HAEMORRHAGE [None]
